FAERS Safety Report 5233562-5 (Version None)
Quarter: 2007Q1

REPORT INFORMATION
  Report Type: 
  Country: None (occurrence: None)
  Receive Date: 20070206
  Receipt Date: 20070126
  Transmission Date: 20070707
  Serious: Yes (Hospitalization)
  Sender: FDA-Public Use
  Company Number: 2007SP001683

PATIENT
  Age: 24 Year
  Sex: Male

DRUGS (2)
  1. PEG-INTRON [Suspect]
     Indication: HEPATITIS C
     Dosage: 80 MCG; QW
     Dates: start: 20060915
  2. REBETOL [Suspect]
     Indication: HEPATITIS C
     Dosage: 800 MG; QD
     Dates: start: 20060915

REACTIONS (1)
  - SCHIZOPHRENIA [None]
